FAERS Safety Report 10157372 (Version 3)
Quarter: 2014Q2

REPORT INFORMATION
  Report Type: Spontaneous
  Country: US (occurrence: US)
  Receive Date: 20140507
  Receipt Date: 20140613
  Transmission Date: 20141212
  Serious: No
  Sender: FDA-Public Use
  Company Number: US-SHIRE-US201401939

PATIENT
  Sex: Male
  Weight: 36.37 kg

DRUGS (6)
  1. VYVANSE [Suspect]
     Indication: ATTENTION DEFICIT/HYPERACTIVITY DISORDER
     Dosage: 30 MG, 1X/DAY:QD (ONLY ON SCHOOL DAYS)
     Route: 048
     Dates: start: 201308, end: 201310
  2. VYVANSE [Suspect]
     Dosage: 40 MG, 1X/DAY:QD  (ONLY ON SCHOOL DAYS)
     Route: 048
     Dates: start: 201310, end: 201401
  3. VYVANSE [Suspect]
     Dosage: 30 MG, 1X/DAY:QD (ONLY ON SCHOOL DAYS)
     Route: 048
     Dates: start: 201401, end: 201404
  4. CLARITIN                           /00917501/ [Concomitant]
     Indication: HYPERSENSITIVITY
     Dosage: UNK, AS REQ^D (ONCE DAILY AS NEEDED)
     Route: 065
  5. ZYRTEC [Concomitant]
     Indication: HYPERSENSITIVITY
     Dosage: UNK, AS REQ^D (ONCE DAILY AS NEEDED)
     Route: 065
  6. FIBRE, DIETARY [Concomitant]
     Indication: CONSTIPATION
     Dosage: 2 DF (TWO GUMMIES), 1X/DAY:QD
     Route: 065
     Dates: start: 201301

REACTIONS (8)
  - Personality change [Recovered/Resolved]
  - Performance status decreased [Recovered/Resolved]
  - Disturbance in attention [Recovered/Resolved]
  - Drug ineffective [Recovered/Resolved]
  - Decreased appetite [Recovered/Resolved]
  - Abnormal loss of weight [Recovered/Resolved]
  - Drug effect decreased [Recovered/Resolved]
  - Product quality issue [Unknown]
